FAERS Safety Report 19704469 (Version 1)
Quarter: 2021Q3

REPORT INFORMATION
  Report Type: Spontaneous
  Country: US (occurrence: US)
  Receive Date: 20210813
  Receipt Date: 20210813
  Transmission Date: 20211014
  Serious: Yes (Death)
  Sender: FDA-Public Use
  Company Number: None

PATIENT
  Age: 85 Year
  Sex: Male

DRUGS (18)
  1. LISINOPRIL. [Concomitant]
     Active Substance: LISINOPRIL
  2. LUPRON DEPOT [Suspect]
     Active Substance: LEUPROLIDE ACETATE
     Indication: PROSTATE CANCER
     Dosage: ?          OTHER FREQUENCY:EVERY 4 MONTH;?
     Route: 030
     Dates: start: 20200905
  3. FOLIC ACID. [Concomitant]
     Active Substance: FOLIC ACID
  4. VITAMIN C [Concomitant]
     Active Substance: ASCORBIC ACID
  5. VITAMIN D [Concomitant]
     Active Substance: VITAMIN D NOS
  6. ARANESP [Concomitant]
     Active Substance: DARBEPOETIN ALFA
  7. DEXAMETHASONE. [Concomitant]
     Active Substance: DEXAMETHASONE
  8. CENTRUM SILVER [Concomitant]
     Active Substance: MINERALS\VITAMINS
  9. IRON [Concomitant]
     Active Substance: IRON
  10. CASODEX [Concomitant]
     Active Substance: BICALUTAMIDE
  11. HYDRALAZINE [Concomitant]
     Active Substance: HYDRALAZINE HYDROCHLORIDE
  12. REVLIMID [Concomitant]
     Active Substance: LENALIDOMIDE
  13. ISOSORBIDE. [Concomitant]
     Active Substance: ISOSORBIDE
  14. METOPROLOL. [Concomitant]
     Active Substance: METOPROLOL
  15. AMIODARONE [Concomitant]
     Active Substance: AMIODARONE
  16. GLIMEPIRIDE. [Concomitant]
     Active Substance: GLIMEPIRIDE
  17. ATORVASTATIN [Concomitant]
     Active Substance: ATORVASTATIN
  18. ELIQUIS [Concomitant]
     Active Substance: APIXABAN

REACTIONS (1)
  - Death [None]

NARRATIVE: CASE EVENT DATE: 20210624
